FAERS Safety Report 9654305 (Version 1)
Quarter: 2013Q4

REPORT INFORMATION
  Report Type: Spontaneous
  Country: US (occurrence: US)
  Receive Date: 20131029
  Receipt Date: 20131029
  Transmission Date: 20140711
  Serious: Yes (Hospitalization)
  Sender: FDA-Public Use
  Company Number: US-MALLINCKRODT-T201304659

PATIENT
  Age: 23 Year
  Sex: Male

DRUGS (4)
  1. FENTANYL TRANSDERMAL SYSTEM [Suspect]
     Indication: PAIN
     Dosage: 75 UG/HR, UNK
     Route: 062
  2. FENTANYL TRANSDERMAL SYSTEM [Suspect]
     Dosage: 100 UG/HR, UNK
     Route: 062
  3. HYDROMORPHONE [Suspect]
     Indication: PAIN
     Route: 065
  4. BUPRENORPHINE [Suspect]
     Indication: PAIN
     Dosage: 2 MG, QID
     Route: 060

REACTIONS (4)
  - Hyperaesthesia [Unknown]
  - Nausea [Unknown]
  - Chills [Unknown]
  - Anxiety [Unknown]
